FAERS Safety Report 15662909 (Version 2)
Quarter: 2019Q2

REPORT INFORMATION
  Report Type: Spontaneous
  Country: US (occurrence: US)
  Receive Date: 20181127
  Receipt Date: 20190506
  Transmission Date: 20190711
  Serious: Yes (Other)
  Sender: FDA-Public Use
  Company Number: US-SA-2018SA321575

PATIENT
  Age: 56 Year
  Sex: Female
  Weight: 86 kg

DRUGS (6)
  1. ADRIAMYCIN [Concomitant]
     Active Substance: DOXORUBICIN HYDROCHLORIDE
  2. TAXOTERE [Suspect]
     Active Substance: DOCETAXEL
     Indication: BREAST CANCER
     Dosage: 190 MG, Q3W
     Route: 042
     Dates: start: 20030828, end: 20030828
  3. VISTARIL [HYDROXYZINE HYDROCHLORIDE] [Concomitant]
     Dosage: UNK
     Dates: start: 1996, end: 2006
  4. LISINOPRIL. [Concomitant]
     Active Substance: LISINOPRIL
  5. TAXOTERE [Suspect]
     Active Substance: DOCETAXEL
     Dosage: 190 MG, Q3W
     Route: 042
     Dates: start: 20031009, end: 20031009
  6. FUROSEMIDE. [Concomitant]
     Active Substance: FUROSEMIDE
     Dosage: UNK
     Dates: start: 2000, end: 2010

REACTIONS (2)
  - Alopecia [Recovering/Resolving]
  - Psychological trauma [Unknown]

NARRATIVE: CASE EVENT DATE: 200308
